FAERS Safety Report 8296766-3 (Version None)
Quarter: 2012Q2

REPORT INFORMATION
  Report Type: 
  Country: None (occurrence: None)
  Receive Date: 20120418
  Receipt Date: 20120411
  Transmission Date: 20120825
  Serious: Yes (Other)
  Sender: FDA-Public Use
  Company Number: DE-AMGEN-DEUSP2012022794

PATIENT
  Sex: Male

DRUGS (2)
  1. VITAMINS                           /90003601/ [Concomitant]
  2. ARANESP [Suspect]
     Indication: PRODUCT USED FOR UNKNOWN INDICATION
     Dosage: 80 MUG, QWK

REACTIONS (2)
  - DRUG INEFFECTIVE [None]
  - APLASIA PURE RED CELL [None]
